FAERS Safety Report 10942847 (Version 2)
Quarter: 2015Q2

REPORT INFORMATION
  Report Type: Spontaneous
  Country: US (occurrence: US)
  Receive Date: 20150322
  Receipt Date: 20150524
  Transmission Date: 20150821
  Serious: No
  Sender: FDA-Public Use
  Company Number: US-JNJFOC-20131100269

PATIENT
  Age: 61 Year
  Sex: Female
  Weight: 102.06 kg

DRUGS (2)
  1. INVOKANA [Suspect]
     Active Substance: CANAGLIFLOZIN
     Indication: WEIGHT DECREASED
     Route: 048
     Dates: start: 20131023, end: 20131030
  2. COUMADIN [Suspect]
     Active Substance: WARFARIN SODIUM
     Indication: THROMBOSIS PROPHYLAXIS

REACTIONS (3)
  - Off label use [Unknown]
  - Fungal infection [Unknown]
  - Anticoagulation drug level below therapeutic [Recovered/Resolved]

NARRATIVE: CASE EVENT DATE: 20131023
